FAERS Safety Report 13967115 (Version 1)
Quarter: 2017Q3

REPORT INFORMATION
  Report Type: Report from Study
  Country: None (occurrence: US)
  Receive Date: 20170914
  Receipt Date: 20170914
  Transmission Date: 20171128
  Serious: Yes (Hospitalization, Other)
  Sender: FDA-Public Use
  Company Number: US-ABBVIE-17K-163-2101302-00

PATIENT
  Sex: Female

DRUGS (2)
  1. HUMIRA [Suspect]
     Active Substance: ADALIMUMAB
     Indication: PSORIATIC ARTHROPATHY
     Route: 058
     Dates: start: 201707
  2. HUMIRA [Suspect]
     Active Substance: ADALIMUMAB
     Indication: PSORIASIS
     Route: 058
     Dates: start: 201501, end: 201611

REACTIONS (8)
  - Grip strength decreased [Unknown]
  - Dry skin [Unknown]
  - Joint swelling [Unknown]
  - Psoriasis [Unknown]
  - Knee operation [Unknown]
  - Post procedural complication [Not Recovered/Not Resolved]
  - Lymphoedema [Recovered/Resolved]
  - Wound secretion [Unknown]

NARRATIVE: CASE EVENT DATE: 2015
